FAERS Safety Report 4918645-9 (Version None)
Quarter: 2006Q1

REPORT INFORMATION
  Report Type: 
  Country: None (occurrence: None)
  Receive Date: 20060221
  Receipt Date: 20060221
  Transmission Date: 20060701
  Serious: No
  Sender: FDA-Public Use
  Company Number: None

PATIENT
  Age: 40 Year
  Sex: Male
  Weight: 74.8435 kg

DRUGS (3)
  1. PAXIL [Suspect]
     Indication: GENERALISED ANXIETY DISORDER
     Dosage: 20 MG 1 DAY PO     10 YEARS ON AND OFF
     Route: 048
  2. PAXIL [Suspect]
     Indication: PANIC ATTACK
     Dosage: 20 MG 1 DAY PO     10 YEARS ON AND OFF
     Route: 048
  3. LEXAPRO [Suspect]
     Indication: PANIC ATTACK
     Dosage: 20 MG 1 DAY PO   TEN YEARS ON AND OFF
     Route: 048

REACTIONS (6)
  - INSOMNIA [None]
  - MUSCLE TWITCHING [None]
  - PANIC ATTACK [None]
  - PARAESTHESIA [None]
  - RESTLESSNESS [None]
  - THINKING ABNORMAL [None]
